FAERS Safety Report 18257362 (Version 2)
Quarter: 2020Q4

REPORT INFORMATION
  Report Type: Spontaneous
  Country: US (occurrence: US)
  Receive Date: 20200911
  Receipt Date: 20201009
  Transmission Date: 20210113
  Serious: No
  Sender: FDA-Public Use
  Company Number: US-APOTEX-2020AP016534

PATIENT
  Sex: Female

DRUGS (2)
  1. FLUTICASONE. [Suspect]
     Active Substance: FLUTICASONE
     Indication: PRODUCT USED FOR UNKNOWN INDICATION
     Dosage: 1 SPRAY IN EACH NOSTRIL A DAY
     Route: 045
  2. FLUTICASONE. [Suspect]
     Active Substance: FLUTICASONE
     Dosage: MORE THAN ONCE A DAY
     Route: 045

REACTIONS (7)
  - Accidental exposure to product [Unknown]
  - Speech disorder [Unknown]
  - Incorrect dose administered by device [Unknown]
  - Headache [Unknown]
  - Accidental exposure to product [Unknown]
  - Device delivery system issue [Unknown]
  - Extra dose administered [Unknown]

NARRATIVE: CASE EVENT DATE: 202008
